FAERS Safety Report 4463986-5 (Version None)
Quarter: 2004Q3

REPORT INFORMATION
  Report Type: 
  Country: None (occurrence: None)
  Receive Date: 20040929
  Receipt Date: 20040910
  Transmission Date: 20050211
  Serious: Yes (Hospitalization)
  Sender: FDA-Public Use
  Company Number: FR_040904742

PATIENT
  Age: 73 Year
  Sex: Male
  Weight: 64 kg

DRUGS (13)
  1. PEMETREXED [Suspect]
     Indication: PLEURAL MESOTHELIOMA MALIGNANT
     Dosage: 500 MG/M2/1 OTHER
     Route: 050
     Dates: start: 20040602
  2. CISPLATIN [Suspect]
     Indication: PLEURAL MESOTHELIOMA MALIGNANT
     Dosage: 75 MG/M2/1 OTHER
     Route: 050
     Dates: start: 20040602
  3. FOLIC ACID [Concomitant]
  4. VITAMIN B-12 [Concomitant]
  5. PREDNISOLONE [Concomitant]
  6. PAROXETINE HCL [Concomitant]
  7. MEDIATOR (BENFLUOREX HYDROCHLORIDE) [Concomitant]
  8. FENOFIBRATE [Concomitant]
  9. LODOZ [Concomitant]
  10. ONDANSETRON HYDROCHLORIDE [Concomitant]
  11. ARANESP [Concomitant]
  12. IMOVANE (ZOPICLONE) [Concomitant]
  13. OMIX (TAMSULOSIN HYDROCHLORIDE) [Concomitant]

REACTIONS (2)
  - GASTRIC ULCER PERFORATION [None]
  - PERITONITIS [None]
